FAERS Safety Report 18348078 (Version 5)
Quarter: 2025Q2

REPORT INFORMATION
  Report Type: Report from Study
  Country: JP (occurrence: JP)
  Receive Date: 20201006
  Receipt Date: 20250414
  Transmission Date: 20250717
  Serious: Yes (Death, Other)
  Sender: GLAXOSMITHKLINE
  Company Number: JP-GSKJP-JP2020JPN198477AA

PATIENT

DRUGS (24)
  1. MEPOLIZUMAB [Suspect]
     Active Substance: MEPOLIZUMAB
     Indication: Eosinophilic granulomatosis with polyangiitis
     Route: 058
     Dates: start: 20180620, end: 20180620
  2. MEPOLIZUMAB [Suspect]
     Active Substance: MEPOLIZUMAB
     Route: 058
     Dates: start: 20180718, end: 20180718
  3. MEPOLIZUMAB [Suspect]
     Active Substance: MEPOLIZUMAB
     Route: 058
     Dates: start: 20180816, end: 20180816
  4. MEPOLIZUMAB [Suspect]
     Active Substance: MEPOLIZUMAB
     Route: 058
     Dates: start: 20180913, end: 20180913
  5. MEPOLIZUMAB [Suspect]
     Active Substance: MEPOLIZUMAB
     Route: 058
     Dates: start: 20181011, end: 20181011
  6. MEPOLIZUMAB [Suspect]
     Active Substance: MEPOLIZUMAB
     Route: 058
     Dates: start: 20181108, end: 20181108
  7. MEPOLIZUMAB [Suspect]
     Active Substance: MEPOLIZUMAB
     Route: 058
     Dates: start: 20181206, end: 20181206
  8. MEPOLIZUMAB [Suspect]
     Active Substance: MEPOLIZUMAB
     Route: 058
     Dates: start: 20190110, end: 20190110
  9. MEPOLIZUMAB [Suspect]
     Active Substance: MEPOLIZUMAB
     Route: 058
     Dates: start: 20190214, end: 20190214
  10. MEPOLIZUMAB [Suspect]
     Active Substance: MEPOLIZUMAB
     Route: 058
     Dates: start: 20190314, end: 20190314
  11. MEPOLIZUMAB [Suspect]
     Active Substance: MEPOLIZUMAB
     Route: 058
     Dates: start: 20190411, end: 20190411
  12. MEPOLIZUMAB [Suspect]
     Active Substance: MEPOLIZUMAB
     Route: 058
     Dates: start: 20190509, end: 20190509
  13. MEPOLIZUMAB [Suspect]
     Active Substance: MEPOLIZUMAB
     Route: 058
     Dates: start: 20190606, end: 20190606
  14. PREDONINE [Concomitant]
     Active Substance: PREDNISOLONE
     Indication: Eosinophilic granulomatosis with polyangiitis
     Dosage: 5 MG, 1D
     Dates: end: 20180816
  15. PREDNISOLONE [Concomitant]
     Active Substance: PREDNISOLONE
     Indication: Eosinophilic granulomatosis with polyangiitis
     Dosage: 4 MG, 1D
     Dates: start: 20180817, end: 20190911
  16. SYMBICORT [Concomitant]
     Active Substance: BUDESONIDE\FORMOTEROL FUMARATE DIHYDRATE
     Dosage: 640 UG, 1D
     Route: 055
     Dates: end: 20190911
  17. ASPIRIN [Concomitant]
     Active Substance: ASPIRIN
  18. Vasolan [Concomitant]
  19. SLOW K [Concomitant]
     Active Substance: POTASSIUM CHLORIDE
  20. NICORANDIL [Concomitant]
     Active Substance: NICORANDIL
  21. ERYTHROCIN [Concomitant]
     Active Substance: ERYTHROMYCIN LACTOBIONATE
  22. CARBOCYSTEINE [Concomitant]
     Active Substance: CARBOCYSTEINE
  23. CRESTOR [Concomitant]
     Active Substance: ROSUVASTATIN CALCIUM
  24. RABEPRAZOLE SODIUM [Concomitant]
     Active Substance: RABEPRAZOLE SODIUM

REACTIONS (2)
  - Marasmus [Fatal]
  - Bronchiectasis [Fatal]

NARRATIVE: CASE EVENT DATE: 20190601
